FAERS Safety Report 24590647 (Version 1)
Quarter: 2024Q4

REPORT INFORMATION
  Report Type: Spontaneous
  Country: CN (occurrence: CN)
  Receive Date: 20241107
  Receipt Date: 20241107
  Transmission Date: 20250114
  Serious: Yes (Life-Threatening)
  Sender: ELI LILLY AND COMPANY
  Company Number: CN-Merck Healthcare KGaA-2024058497

PATIENT
  Age: 63 Year
  Sex: Male

DRUGS (5)
  1. ERBITUX [Suspect]
     Active Substance: CETUXIMAB
     Indication: Rectal neoplasm
     Dosage: 800 MG, UNKNOWN
     Route: 041
     Dates: start: 20241001, end: 20241001
  2. FLUOROURACIL [Suspect]
     Active Substance: FLUOROURACIL
     Indication: Rectal neoplasm
     Dosage: 0.75 G, UNKNOWN
     Route: 041
     Dates: start: 20241001, end: 20241001
  3. FLUOROURACIL [Suspect]
     Active Substance: FLUOROURACIL
     Dosage: 3.75 UNK
     Route: 041
     Dates: start: 20241001, end: 20241001
  4. IRINOTECAN HYDROCHLORIDE [Suspect]
     Active Substance: IRINOTECAN HYDROCHLORIDE
     Indication: Rectal neoplasm
     Dosage: 0.29 G, UNKNOWN
     Route: 041
     Dates: start: 20241001, end: 20241001
  5. LEVOLEUCOVORIN CALCIUM [Suspect]
     Active Substance: LEVOLEUCOVORIN CALCIUM
     Indication: Rectal neoplasm
     Dosage: 320 ML, UNKNOWN
     Route: 041
     Dates: start: 20240930, end: 20240930

REACTIONS (1)
  - Granulocyte count decreased [Recovered/Resolved]

NARRATIVE: CASE EVENT DATE: 20241009
